FAERS Safety Report 15712166 (Version 2)
Quarter: 2019Q1

REPORT INFORMATION
  Report Type: Spontaneous
  Country: PT (occurrence: PT)
  Receive Date: 20181212
  Receipt Date: 20190225
  Transmission Date: 20190417
  Serious: Yes (Hospitalization, Other)
  Sender: FDA-Public Use
  Company Number: PT-AUROBINDO-AUR-APL-2018-059605

PATIENT

DRUGS (4)
  1. AMOXICILLIN+CLAVULANIC ACID 875/125MG [Suspect]
     Active Substance: AMOXICILLIN\CLAVULANIC ACID
     Dosage: UNK,850 + 125 MG EVERY 12 HOURS
     Route: 065
  2. AMOXICILLIN+CLAVULANIC ACID 875/125MG [Suspect]
     Active Substance: AMOXICILLIN\CLAVULANIC ACID
     Indication: WOUND INFECTION
     Dosage: AMOXICILLIN + CLAVULANIC ACID 875MG + 125MG 12 / 12H FOR EIGHT DAYS.
     Route: 065
  3. CEFTRIAXONE. [Concomitant]
     Active Substance: CEFTRIAXONE
     Indication: PRODUCT USED FOR UNKNOWN INDICATION
     Dosage: UNK
     Route: 065
  4. DOXYCYCLINE. [Concomitant]
     Active Substance: DOXYCYCLINE
     Indication: PRODUCT USED FOR UNKNOWN INDICATION
     Dosage: UNK
     Route: 065

REACTIONS (7)
  - Acute kidney injury [Recovered/Resolved]
  - Peripheral arterial occlusive disease [Recovering/Resolving]
  - Sepsis [Recovered/Resolved]
  - Condition aggravated [Recovered/Resolved]
  - Delirium [Recovered/Resolved]
  - Drug ineffective [Unknown]
  - Altered state of consciousness [Recovering/Resolving]
